FAERS Safety Report 14805296 (Version 2)
Quarter: 2018Q2

REPORT INFORMATION
  Report Type: Report from Study
  Country: JP (occurrence: JP)
  Receive Date: 20180425
  Receipt Date: 20180503
  Transmission Date: 20180711
  Serious: Yes (Hospitalization)
  Sender: FDA-Public Use
  Company Number: JP-EISAI MEDICAL RESEARCH-EC-2018-038655

PATIENT
  Age: 41 Year
  Sex: Female
  Weight: 38 kg

DRUGS (7)
  1. ERIBULIN [Suspect]
     Active Substance: ERIBULIN
     Indication: COLON CANCER
     Route: 041
     Dates: start: 20180411
  2. POLAPREZINC [Concomitant]
     Active Substance: POLAPREZINC
  3. CODEINE PHOSPHATE HYDRATE [Concomitant]
     Active Substance: CODEINE PHOSPHATE
  4. NEXIUM [Concomitant]
     Active Substance: ESOMEPRAZOLE MAGNESIUM
  5. URSODEOXYCHOLIC ACID [Concomitant]
     Active Substance: URSODIOL
  6. DECADRON [Concomitant]
     Active Substance: DEXAMETHASONE
  7. MAGMITT [Concomitant]
     Active Substance: MAGNESIUM OXIDE

REACTIONS (1)
  - Biliary dilatation [Not Recovered/Not Resolved]

NARRATIVE: CASE EVENT DATE: 20180419
